FAERS Safety Report 25082026 (Version 1)
Quarter: 2025Q1

REPORT INFORMATION
  Report Type: Spontaneous
  Country: US (occurrence: US)
  Receive Date: 20250317
  Receipt Date: 20250317
  Transmission Date: 20250409
  Serious: No
  Sender: SANOFI AVENTIS
  Company Number: US-SA-2025SA074775

PATIENT
  Age: 79 Year
  Sex: Male
  Weight: 58.97 kg

DRUGS (1)
  1. DUPIXENT [Suspect]
     Active Substance: DUPILUMAB
     Dosage: 300 MG, QM
     Route: 058
     Dates: start: 20250312, end: 20250312

REACTIONS (1)
  - Product prescribing error [Unknown]

NARRATIVE: CASE EVENT DATE: 20250312
